FAERS Safety Report 8570734-6 (Version None)
Quarter: 2012Q3

REPORT INFORMATION
  Report Type: 
  Country: None (occurrence: None)
  Receive Date: 20120805
  Receipt Date: 20120727
  Transmission Date: 20120928
  Serious: No
  Sender: FDA-Public Use
  Company Number: US-009507513-1207USA011519

PATIENT

DRUGS (11)
  1. SIMVASTATIN [Concomitant]
  2. TRIHEXYPHENIDYL HCL [Concomitant]
  3. BENICAR [Concomitant]
  4. EXELON [Concomitant]
  5. SAPHRIS [Suspect]
     Indication: BIPOLAR DISORDER
     Dosage: 5 MG, QD
     Route: 060
     Dates: start: 20100101
  6. LAMICTAL [Concomitant]
  7. OMEPRAZOLE [Concomitant]
  8. PRIMIDONE [Concomitant]
  9. LEXAPRO [Concomitant]
  10. CLONAZEPAM [Concomitant]
  11. OXYBUTYNIN [Concomitant]

REACTIONS (3)
  - UNDERDOSE [None]
  - DRY MOUTH [None]
  - PRODUCT SOLUBILITY ABNORMAL [None]
